FAERS Safety Report 7071395-8 (Version None)
Quarter: 2010Q4

REPORT INFORMATION
  Report Type: 
  Country: None (occurrence: None)
  Receive Date: 20101029
  Receipt Date: 20100826
  Transmission Date: 20110411
  Serious: No
  Sender: FDA-Public Use
  Company Number: A0746113A

PATIENT
  Age: 52 Year
  Sex: Male

DRUGS (10)
  1. ADVAIR DISKUS 100/50 [Suspect]
     Indication: CHRONIC OBSTRUCTIVE PULMONARY DISEASE
     Route: 055
     Dates: start: 20060301
  2. COMBIVENT [Concomitant]
  3. LISINOPRIL [Concomitant]
  4. FUROSEMIDE [Concomitant]
  5. METOPROLOL [Concomitant]
  6. RANITIDINE [Concomitant]
  7. CITALOPRAM HYDROBROMIDE [Concomitant]
  8. ALPRAZOLAM [Concomitant]
  9. PERCOCET [Concomitant]
  10. MORPHINE [Concomitant]

REACTIONS (7)
  - ENAMEL ANOMALY [None]
  - HEADACHE [None]
  - PAIN IN JAW [None]
  - TEETH BRITTLE [None]
  - TOOTH DISORDER [None]
  - TOOTH EXTRACTION [None]
  - TOOTH INJURY [None]
